FAERS Safety Report 9486262 (Version 1)
Quarter: 2013Q3

REPORT INFORMATION
  Report Type: Spontaneous
  Country: US (occurrence: None)
  Receive Date: 20130827
  Receipt Date: 20130827
  Transmission Date: 20140515
  Serious: Yes (Other)
  Sender: FDA-Public Use
  Company Number: None

PATIENT
  Sex: Female
  Weight: 90.27 kg

DRUGS (12)
  1. LIPITOR [Suspect]
     Indication: BLOOD CHOLESTEROL INCREASED
     Dosage: 40MG. 1 PILL 1X MOUTH
     Route: 048
     Dates: start: 1983
  2. ASPIRIN [Concomitant]
  3. VIT E [Concomitant]
  4. VIT C [Concomitant]
  5. FUROSEMIDE [Concomitant]
  6. ISOSORBIDE MONONITRATE [Concomitant]
  7. METROPOL TAR. [Concomitant]
  8. MELOXICAM [Concomitant]
  9. TRAMADOL [Concomitant]
  10. KLOR-CON [Concomitant]
  11. LORSARTAN [Concomitant]
  12. STOOL SOFTENER [Concomitant]

REACTIONS (1)
  - Renal failure [None]
